FAERS Safety Report 9874862 (Version 1)
Quarter: 2014Q1

REPORT INFORMATION
  Report Type: Spontaneous
  Country: US (occurrence: None)
  Receive Date: 20140205
  Receipt Date: 20140205
  Transmission Date: 20141002
  Serious: Yes (Disabling)
  Sender: FDA-Public Use
  Company Number: None

PATIENT
  Age: 67 Year
  Sex: Female
  Weight: 70.76 kg

DRUGS (1)
  1. SIMVASTATIN [Suspect]
     Indication: BLOOD CHOLESTEROL
     Route: 048
     Dates: start: 20140101, end: 20140123

REACTIONS (10)
  - Fatigue [None]
  - Headache [None]
  - Myalgia [None]
  - Arthralgia [None]
  - Neuralgia [None]
  - Neck pain [None]
  - Pain in extremity [None]
  - Abnormal dreams [None]
  - Product substitution issue [None]
  - Fatigue [None]
